FAERS Safety Report 7190940-5 (Version None)
Quarter: 2010Q4

REPORT INFORMATION
  Report Type: 
  Country: None (occurrence: None)
  Receive Date: 20101222
  Receipt Date: 20101222
  Transmission Date: 20110411
  Serious: Yes (Other)
  Sender: FDA-Public Use
  Company Number: None

PATIENT
  Sex: Female
  Weight: 83.0083 kg

DRUGS (1)
  1. DARVOCET [Suspect]
     Indication: BACK PAIN
     Dosage: 1 Q 6 HRS AS NEEDED 30 DAY SUPPLY ISSUED IN OCT-NOV 2010

REACTIONS (3)
  - HEART RATE IRREGULAR [None]
  - SUPRAVENTRICULAR EXTRASYSTOLES [None]
  - VENTRICULAR EXTRASYSTOLES [None]
